FAERS Safety Report 5196258-4 (Version None)
Quarter: 2007Q1

REPORT INFORMATION
  Report Type: 
  Country: None (occurrence: None)
  Receive Date: 20070102
  Receipt Date: 20061222
  Transmission Date: 20070707
  Serious: Yes (Other)
  Sender: FDA-Public Use
  Company Number: US-GILEAD-2006-0010908

PATIENT
  Age: 36 Year
  Sex: Female

DRUGS (3)
  1. VIREAD [Suspect]
     Indication: HIV INFECTION
     Route: 048
     Dates: start: 20000701
  2. VIRAMUNE [Concomitant]
     Indication: HIV INFECTION
     Route: 048
     Dates: start: 20000701
  3. KALETRA [Concomitant]
     Indication: HIV INFECTION
     Route: 048
     Dates: start: 20000701

REACTIONS (2)
  - DRUG EXPOSURE DURING PREGNANCY [None]
  - STILLBIRTH [None]
